FAERS Safety Report 4974821-0 (Version None)
Quarter: 2006Q1

REPORT INFORMATION
  Report Type: 
  Country: None (occurrence: None)
  Receive Date: 20060216
  Receipt Date: 20050708
  Transmission Date: 20060701
  Serious: Yes (Hospitalization)
  Sender: FDA-Public Use
  Company Number: 200507IM000290

PATIENT
  Age: 61 Year
  Sex: Female
  Weight: 46.2669 kg

DRUGS (8)
  1. BLINDED THERAPY (INTERFERON GAMMA-1B) [Suspect]
     Indication: IDIOPATHIC PULMONARY FIBROSIS
     Dosage: 200 UG, TIW (MONDAY, WEDNESDAY, FRIDAY), SUBCUTANEOUS
     Route: 058
     Dates: start: 20050406
  2. LOTENSIN [Concomitant]
  3. MAXZIDE [Concomitant]
  4. EVISTA [Concomitant]
  5. FOLIC ACID [Concomitant]
  6. PREDNISONE TAB [Concomitant]
  7. MEGACE [Concomitant]
  8. ASPIRIN [Concomitant]

REACTIONS (1)
  - LOBAR PNEUMONIA [None]
